FAERS Safety Report 9127864 (Version 1)
Quarter: 2013Q1

REPORT INFORMATION
  Report Type: Spontaneous
  Country: US (occurrence: US)
  Receive Date: 20130228
  Receipt Date: 20130228
  Transmission Date: 20140127
  Serious: No
  Sender: FDA-Public Use
  Company Number: US-GLAXOSMITHKLINE-A1005563A

PATIENT
  Age: 35 Year
  Sex: Female

DRUGS (3)
  1. LAMICTAL [Suspect]
     Indication: DEPRESSION
     Route: 048
  2. LATUDA [Suspect]
     Indication: DEPRESSION
  3. CYMBALTA [Concomitant]

REACTIONS (1)
  - Alopecia [Unknown]
